FAERS Safety Report 7421838-2 (Version None)
Quarter: 2011Q2

REPORT INFORMATION
  Report Type: 
  Country: None (occurrence: None)
  Receive Date: 20110418
  Receipt Date: 20110411
  Transmission Date: 20111010
  Serious: Yes (Other)
  Sender: FDA-Public Use
  Company Number: ES-PFIZER INC-2011033995

PATIENT
  Age: 34 Year
  Sex: Male

DRUGS (1)
  1. VIAGRA [Suspect]
     Indication: ERECTILE DYSFUNCTION
     Dosage: 50 MG, UNK
     Dates: start: 20110202, end: 20110202

REACTIONS (6)
  - ERYTHEMA [None]
  - OCULAR HYPERAEMIA [None]
  - LOSS OF CONSCIOUSNESS [None]
  - DIZZINESS [None]
  - HYPERHIDROSIS [None]
  - VISION BLURRED [None]
